FAERS Safety Report 18141472 (Version 1)
Quarter: 2020Q3

REPORT INFORMATION
  Report Type: Spontaneous
  Country: US (occurrence: US)
  Receive Date: 20200812
  Receipt Date: 20200812
  Transmission Date: 20201103
  Serious: No
  Sender: FDA-Public Use
  Company Number: US-009507513-2007USA009864

PATIENT
  Age: 64 Year
  Sex: Female

DRUGS (1)
  1. KEYTRUDA [Suspect]
     Active Substance: PEMBROLIZUMAB
     Indication: TRANSITIONAL CELL CARCINOMA RECURRENT
     Dosage: 200 MILLIGRAM, EVERY 3 WEEKS
     Route: 042
     Dates: end: 2020

REACTIONS (1)
  - Oral lichenoid reaction [Recovering/Resolving]

NARRATIVE: CASE EVENT DATE: 2020
